FAERS Safety Report 9297932 (Version 3)
Quarter: 2013Q4

REPORT INFORMATION
  Report Type: Spontaneous
  Country: US (occurrence: US)
  Receive Date: 20130520
  Receipt Date: 20131011
  Transmission Date: 20140711
  Serious: No
  Sender: FDA-Public Use
  Company Number: US-PFIZER INC-2013153194

PATIENT
  Age: 6 Year
  Sex: Male
  Weight: 25.85 kg

DRUGS (1)
  1. CHILDREN^S ADVIL [Suspect]
     Indication: HEADACHE
     Dosage: 2 TEASPOONS, TWO TIMES A DAY
     Route: 048
     Dates: start: 20130502

REACTIONS (1)
  - Urticaria [Recovered/Resolved]
